FAERS Safety Report 6354219-3 (Version None)
Quarter: 2009Q3

REPORT INFORMATION
  Report Type: 
  Country: None (occurrence: None)
  Receive Date: 20090914
  Receipt Date: 20090902
  Transmission Date: 20100115
  Serious: Yes (Other)
  Sender: FDA-Public Use
  Company Number: PHHY2009FR37441

PATIENT
  Age: 71 Year
  Sex: Female

DRUGS (2)
  1. ACLASTA [Suspect]
     Indication: OSTEITIS DEFORMANS
     Dosage: UNK
  2. PROZAC [Concomitant]

REACTIONS (4)
  - ASTHENIA [None]
  - DEPRESSION [None]
  - LETHARGY [None]
  - MOOD ALTERED [None]
